FAERS Safety Report 15741276 (Version 6)
Quarter: 2020Q1

REPORT INFORMATION
  Report Type: Report from Study
  Country: JP (occurrence: JP)
  Receive Date: 20181219
  Receipt Date: 20200129
  Transmission Date: 20200409
  Serious: Yes (Hospitalization)
  Sender: FDA-Public Use
  Company Number: JP-EISAI MEDICAL RESEARCH-EC-2018-049325

PATIENT
  Age: 61 Year
  Sex: Male
  Weight: 63 kg

DRUGS (6)
  1. LENVIMA [Suspect]
     Active Substance: LENVATINIB
     Indication: HEPATOCELLULAR CARCINOMA
     Route: 048
     Dates: start: 20181119, end: 20181128
  2. TASIGNA [Concomitant]
     Active Substance: NILOTINIB
  3. SHAKUYAKUKANZOTO [Concomitant]
     Active Substance: HERBALS
  4. FEBURIC [Concomitant]
     Active Substance: FEBUXOSTAT
  5. L CARTIN [Concomitant]
     Active Substance: LEVOCARNITINE HYDROCHLORIDE
  6. LAC-B [Concomitant]
     Active Substance: BIFIDOBACTERIUM SPP.

REACTIONS (2)
  - Cardiac failure [Recovered/Resolved]
  - Ejection fraction decreased [Recovering/Resolving]

NARRATIVE: CASE EVENT DATE: 20181128
